FAERS Safety Report 5376967-4 (Version None)
Quarter: 2007Q3

REPORT INFORMATION
  Report Type: 
  Country: None (occurrence: None)
  Receive Date: 20070703
  Receipt Date: 20070621
  Transmission Date: 20080115
  Serious: Yes (Death, Disabling)
  Sender: FDA-Public Use
  Company Number: FR-JNJFOC-20070605472

PATIENT
  Age: 66 Year
  Sex: Female

DRUGS (3)
  1. CAELYX [Suspect]
     Indication: BREAST CANCER
     Route: 042
  2. ARIMIDEX [Suspect]
     Indication: BREAST CANCER
     Route: 042
  3. ZOMETA [Suspect]
     Indication: BREAST CANCER
     Route: 042

REACTIONS (2)
  - DEATH [None]
  - OSTEONECROSIS [None]
